FAERS Safety Report 5243281-7 (Version None)
Quarter: 2007Q1

REPORT INFORMATION
  Report Type: 
  Country: None (occurrence: None)
  Receive Date: 20070221
  Receipt Date: 20070209
  Transmission Date: 20070707
  Serious: Yes (Other)
  Sender: FDA-Public Use
  Company Number: US-PFIZER INC-2007012491

PATIENT
  Sex: Male
  Weight: 117.9 kg

DRUGS (13)
  1. CHANTIX [Suspect]
     Indication: SMOKING CESSATION THERAPY
     Dates: start: 20070101, end: 20070207
  2. AZITHROMYCIN [Suspect]
     Indication: MYCOBACTERIUM AVIUM COMPLEX INFECTION
  3. RIFAMPIN [Suspect]
     Indication: MYCOBACTERIUM AVIUM COMPLEX INFECTION
  4. LYRICA [Concomitant]
  5. ZANTAC [Concomitant]
  6. AMITRIPTYLINE HCL [Concomitant]
  7. LIPITOR [Concomitant]
  8. ZETIA [Concomitant]
  9. LISINOPRIL [Concomitant]
  10. GUAIFENEX DM [Concomitant]
  11. ZANAFLEX [Concomitant]
  12. PERCOCET [Concomitant]
  13. CYMBALTA [Concomitant]

REACTIONS (5)
  - MYCOBACTERIUM AVIUM COMPLEX INFECTION [None]
  - NAUSEA [None]
  - SWEAT DISCOLOURATION [None]
  - TEAR DISCOLOURATION [None]
  - VOMITING [None]
